FAERS Safety Report 5904317-0 (Version None)
Quarter: 2008Q3

REPORT INFORMATION
  Report Type: 
  Country: None (occurrence: None)
  Receive Date: 20080930
  Receipt Date: 20080930
  Transmission Date: 20090109
  Serious: Yes (Life-Threatening)
  Sender: FDA-Public Use
  Company Number: None

PATIENT
  Sex: Male
  Weight: 90.7194 kg

DRUGS (1)
  1. CHANTIX [Suspect]
     Indication: SMOKING CESSATION THERAPY
     Dosage: 1MG 2 PO
     Route: 048

REACTIONS (10)
  - ABNORMAL BEHAVIOUR [None]
  - ABNORMAL DREAMS [None]
  - AGGRESSION [None]
  - ALCOHOL USE [None]
  - BLOOD GLUCOSE INCREASED [None]
  - INJURY [None]
  - IRRITABILITY [None]
  - LEGAL PROBLEM [None]
  - PERSONALITY CHANGE [None]
  - STRESS [None]
